FAERS Safety Report 10154259 (Version 1)
Quarter: 2014Q2

REPORT INFORMATION
  Report Type: Spontaneous
  Country: US (occurrence: US)
  Receive Date: 20140506
  Receipt Date: 20140506
  Transmission Date: 20141212
  Serious: Yes (Other)
  Sender: FDA-Public Use
  Company Number: US-PFIZER INC-2014118410

PATIENT
  Age: 42 Year
  Sex: Female
  Weight: 65.76 kg

DRUGS (3)
  1. ALSUMA [Suspect]
     Indication: MIGRAINE
     Dosage: UNK, MONTHLY
     Dates: start: 201301, end: 201311
  2. LORAZEPAM [Concomitant]
     Indication: INSOMNIA
     Dosage: 2 MG, UNK
  3. SINGULAIR [Concomitant]
     Dosage: UNK

REACTIONS (4)
  - Throat tightness [Recovered/Resolved]
  - Dyspnoea [Recovered/Resolved]
  - Tension [Recovered/Resolved]
  - Hypersensitivity [Recovered/Resolved]
